FAERS Safety Report 9359137 (Version 3)
Quarter: 2013Q4

REPORT INFORMATION
  Report Type: Spontaneous
  Country: US (occurrence: US)
  Receive Date: 20130620
  Receipt Date: 20131220
  Transmission Date: 20140711
  Serious: Yes (Hospitalization)
  Sender: FDA-Public Use
  Company Number: US-B.I. PHARMACEUTICALS,INC./RIDGEFIELD-2013-BI-17406BP

PATIENT
  Sex: Female
  Weight: 54.43 kg

DRUGS (17)
  1. PRADAXA [Suspect]
     Indication: ATRIAL FIBRILLATION
     Dosage: 300 MG
     Route: 048
     Dates: start: 201102, end: 201107
  2. METFORMIN [Concomitant]
  3. CARDIA [Concomitant]
  4. ALTACE [Concomitant]
  5. DIQUOXIN [Concomitant]
     Route: 048
  6. AVANDIA [Concomitant]
  7. ZOCOR [Concomitant]
  8. WARFARIN [Concomitant]
  9. COZAAR [Concomitant]
  10. ADVANDAMET [Concomitant]
  11. SPIRIVA [Concomitant]
  12. SIMVASTATIN [Concomitant]
  13. RAMIPRIL [Concomitant]
  14. CUROSEMIDE [Concomitant]
  15. LIPITOR [Concomitant]
     Route: 048
  16. PROAIR [Concomitant]
  17. ADVAIR [Concomitant]

REACTIONS (5)
  - Gastrointestinal haemorrhage [Unknown]
  - Anaemia [Unknown]
  - Asthenia [Unknown]
  - Dizziness [Unknown]
  - Haemorrhage [Unknown]
